FAERS Safety Report 8768245 (Version 1)
Quarter: 2012Q4

REPORT INFORMATION
  Report Type: 
  Country: US (occurrence: US)
  Receive Date: 20120904
  Receipt Date: 20120904
  Transmission Date: 20130627
  Serious: No
  Sender: FDA-Public Use
  Company Number: US-AMGEN-USASP2012053461

PATIENT
  Sex: Female

DRUGS (3)
  1. ENBREL [Suspect]
     Indication: PSORIATIC ARTHROPATHY
     Dosage: 25 mg, every 10 days
     Route: 058
  2. SYNTHROID [Concomitant]
     Dosage: UNK
  3. MIGRAINE [Concomitant]
     Dosage: UNK

REACTIONS (2)
  - Arthralgia [Unknown]
  - Psoriasis [Unknown]
